FAERS Safety Report 10287317 (Version 5)
Quarter: 2014Q4

REPORT INFORMATION
  Report Type: Spontaneous
  Country: US (occurrence: US)
  Receive Date: 20140709
  Receipt Date: 20141205
  Transmission Date: 20150528
  Serious: Yes (Death, Hospitalization)
  Sender: FDA-Public Use
  Company Number: US-BRISTOL-MYERS SQUIBB COMPANY-21147103

PATIENT
  Age: 57 Year
  Sex: Male

DRUGS (22)
  1. GLIPIZIDE. [Concomitant]
     Active Substance: GLIPIZIDE
     Dosage: 1DF = 10 UNIT NOS
  2. VITAMIN B [Concomitant]
     Active Substance: VITAMIN B
  3. TRICOR [Concomitant]
     Active Substance: FENOFIBRATE
  4. CHROMIUM [Concomitant]
     Active Substance: CHROMIC CHLORIDE\CHROMIUM
  5. SAW PALMETTO [Concomitant]
     Active Substance: SAW PALMETTO
  6. NIASPAN [Concomitant]
     Active Substance: NIACIN
  7. GLUCOSAMINE [Concomitant]
     Active Substance: GLUCOSAMINE
  8. CHONDROITIN SULFATE (BOVINE) [Concomitant]
     Active Substance: CHONDROITIN SULFATE (BOVINE)
  9. BYETTA [Suspect]
     Active Substance: EXENATIDE
     Indication: TYPE 2 DIABETES MELLITUS
  10. TENORMIN [Concomitant]
     Active Substance: ATENOLOL
  11. VYTORIN [Concomitant]
     Active Substance: EZETIMIBE\SIMVASTATIN
  12. INSULIN [Concomitant]
     Active Substance: INSULIN NOS
  13. CARDURA [Concomitant]
     Active Substance: DOXAZOSIN MESYLATE
  14. OMACOR [Concomitant]
     Active Substance: OMEGA-3-ACID ETHYL ESTERS
  15. COENZYME Q10 [Concomitant]
     Active Substance: UBIDECARENONE
  16. OLMESARTAN MEDOXOMIL + HCTZ [Concomitant]
     Active Substance: HYDROCHLOROTHIAZIDE\OLMESARTAN MEDOXOMIL
  17. ASPIRIN. [Concomitant]
     Active Substance: ASPIRIN
  18. METFORMIN HCL XR [Suspect]
     Active Substance: METFORMIN HYDROCHLORIDE
  19. NIASPAN [Concomitant]
     Active Substance: NIACIN
  20. NEXIUM [Concomitant]
     Active Substance: ESOMEPRAZOLE MAGNESIUM
  21. GINKGO [Concomitant]
     Active Substance: GINKGO
  22. MULTIVITAMIN [Concomitant]
     Active Substance: VITAMINS

REACTIONS (12)
  - Lactic acidosis [Unknown]
  - Multi-organ failure [Fatal]
  - Flatulence [Unknown]
  - Decreased appetite [Unknown]
  - Pancreatitis acute [Fatal]
  - Nausea [Unknown]
  - Anxiety [Unknown]
  - Fatigue [Unknown]
  - Sepsis [Fatal]
  - Shock [Fatal]
  - Brain oedema [Fatal]
  - Dizziness [Unknown]
